FAERS Safety Report 9958807 (Version 1)
Quarter: 2014Q1

REPORT INFORMATION
  Report Type: Spontaneous
  Country: PR (occurrence: PR)
  Receive Date: 20140305
  Receipt Date: 20140305
  Transmission Date: 20141002
  Serious: Yes (Hospitalization)
  Sender: FDA-Public Use
  Company Number: PR-ABBVIE-13P-131-1105944-00

PATIENT
  Age: 44 Year
  Sex: Female
  Weight: 86.26 kg

DRUGS (11)
  1. HUMIRA [Suspect]
     Indication: RHEUMATOID ARTHRITIS
     Route: 058
     Dates: start: 201109, end: 20130515
  2. HUMIRA [Suspect]
     Route: 058
     Dates: start: 20130601
  3. SYNTHROID [Concomitant]
     Indication: THYROID NEOPLASM
     Route: 048
  4. AVAPRO [Concomitant]
     Indication: HYPERTENSION
     Route: 048
  5. NORVASC [Concomitant]
     Indication: HYPERTENSION
     Route: 048
  6. JANUVIA [Concomitant]
     Indication: DIABETES MELLITUS
     Route: 048
  7. FOLIC ACID [Concomitant]
     Indication: VITAMIN SUPPLEMENTATION
     Route: 048
  8. VITAMIN D [Concomitant]
     Indication: VITAMIN SUPPLEMENTATION
     Route: 048
  9. METHOTREXATE [Concomitant]
     Indication: PRODUCT USED FOR UNKNOWN INDICATION
     Route: 058
  10. CYMBALTA [Concomitant]
     Indication: PRODUCT USED FOR UNKNOWN INDICATION
     Route: 048
  11. LIPITOR [Concomitant]
     Route: 048

REACTIONS (1)
  - Hip arthroplasty [Recovering/Resolving]
